FAERS Safety Report 22790307 (Version 2)
Quarter: 2023Q4

REPORT INFORMATION
  Report Type: Spontaneous
  Country: TW (occurrence: TW)
  Receive Date: 20230805
  Receipt Date: 20231122
  Transmission Date: 20240109
  Serious: Yes (Death, Hospitalization)
  Sender: FDA-Public Use
  Company Number: TW-002147023-NVSC2023TW166427

PATIENT
  Age: 83 Year
  Sex: Female
  Weight: 69.4 kg

DRUGS (19)
  1. AMOXICILLIN\CLAVULANIC ACID [Suspect]
     Active Substance: AMOXICILLIN\CLAVULANIC ACID
     Indication: Product used for unknown indication
     Dosage: 1 DOSAGE FORM, Q12H, ONSET DATE: 21-JUL-2023, STOP DATE: 24-JUL-2023
     Route: 065
  2. CEFTRIAXONE [Suspect]
     Active Substance: CEFTRIAXONE\CEFTRIAXONE SODIUM
     Indication: Product used for unknown indication
     Dosage: 2 G, QD ROUTE OF ADMIN (FREE TEXT): INTRAVENOUS DRIP, ONSET DATE - 29-JUN-2023
     Route: 042
     Dates: end: 20230719
  3. CEFTRIAXONE [Suspect]
     Active Substance: CEFTRIAXONE\CEFTRIAXONE SODIUM
     Dosage: 2 G, Q12H ROUTE OF ADMIN (FREE TEXT): INTRAVENOUS DRIP, ONSET DATE - 21-JUL-2023
     Route: 042
  4. FEXOFENADINE [Suspect]
     Active Substance: FEXOFENADINE HYDROCHLORIDE
     Indication: Product used for unknown indication
     Dosage: UNK, QD, ONSET DATE: 19-JUL-2023
     Route: 065
     Dates: end: 20230726
  5. FEXOFENADINE [Suspect]
     Active Substance: FEXOFENADINE HYDROCHLORIDE
     Dosage: UNK, ONSET DATE: 23-JUL-2023
     Route: 065
  6. PIPERACILLIN AND TAZOBACTAM [Suspect]
     Active Substance: PIPERACILLIN SODIUM\TAZOBACTAM SODIUM
     Indication: Product used for unknown indication
     Dosage: UNK, Q8H, ONSET DATE: 24-JUL-2023, STOP DATE: 26-JUL-2023
     Route: 065
  7. ALLOPURINOL [Concomitant]
     Active Substance: ALLOPURINOL
     Indication: Product used for unknown indication
     Dosage: UNK (WITH THE EARLIEST TRACEABLE RECORD TO 24 JAN 2019)
     Route: 065
     Dates: end: 20230725
  8. ASPIRIN [Concomitant]
     Active Substance: ASPIRIN
     Indication: Product used for unknown indication
     Dosage: 100 MG, QD
     Route: 065
  9. BISACODYL [Concomitant]
     Active Substance: BISACODYL
     Indication: Product used for unknown indication
     Dosage: 5 MG, HS
     Route: 065
     Dates: end: 20230721
  10. BISOPROLOL [Concomitant]
     Active Substance: BISOPROLOL\BISOPROLOL FUMARATE
     Indication: Product used for unknown indication
     Dosage: 1.25 MG, QD
     Route: 065
  11. CETIRIZINE [Concomitant]
     Active Substance: CETIRIZINE HYDROCHLORIDE
     Indication: Product used for unknown indication
     Dosage: 10 MG, QOD
     Route: 065
     Dates: end: 20230719
  12. CILOSTAZOL [Concomitant]
     Active Substance: CILOSTAZOL
     Indication: Product used for unknown indication
     Dosage: UNK (BIDAC )
     Route: 065
  13. CLOPIDOGREL [Concomitant]
     Active Substance: CLOPIDOGREL BISULFATE
     Dosage: 75 MG, QD
     Route: 048
  14. CLOPIDOGREL [Concomitant]
     Active Substance: CLOPIDOGREL BISULFATE
     Indication: Peripheral arterial occlusive disease
     Dosage: UNK
     Route: 065
  15. DIPHENIDOL [Concomitant]
     Active Substance: DIPHENIDOL
     Indication: Product used for unknown indication
     Dosage: 25 MG, TIW
     Route: 065
     Dates: end: 20230707
  16. NICAMETATE [Concomitant]
     Active Substance: NICAMETATE
     Indication: Product used for unknown indication
     Dosage: 50 MG, TIW
     Route: 065
     Dates: end: 20230705
  17. PIOGLITAZONE [Concomitant]
     Active Substance: PIOGLITAZONE
     Indication: Product used for unknown indication
     Dosage: 30 MG (QDAC)
     Route: 065
  18. SENNOSIDES A AND B [Concomitant]
     Active Substance: SENNOSIDES A AND B
     Dosage: 2 DOSAGE FORM, HS
     Route: 065
     Dates: start: 20230721
  19. SENNOSIDES A AND B [Concomitant]
     Active Substance: SENNOSIDES A AND B
     Indication: Product used for unknown indication
     Dosage: 3 DOSAGE FORM, QN
     Route: 065
     Dates: end: 20230720

REACTIONS (23)
  - Stevens-Johnson syndrome [Fatal]
  - Rash [Fatal]
  - Toxic epidermal necrolysis [Fatal]
  - End stage renal disease [Fatal]
  - Anaemia [Fatal]
  - Septic shock [Fatal]
  - Ankle fracture [Fatal]
  - Skin necrosis [Fatal]
  - Hypertension [Fatal]
  - Diabetes mellitus [Fatal]
  - Hypersensitivity [Fatal]
  - Loss of consciousness [Recovering/Resolving]
  - Blood pressure decreased [Unknown]
  - Xerosis [Unknown]
  - Skin fragility [Unknown]
  - Poor peripheral circulation [Unknown]
  - Pain [Unknown]
  - Scratch [Unknown]
  - Dyspnoea [Unknown]
  - Purpura [Unknown]
  - Pruritus [Unknown]
  - Pyrexia [Unknown]
  - Rash erythematous [Unknown]

NARRATIVE: CASE EVENT DATE: 20230719
